FAERS Safety Report 17518448 (Version 1)
Quarter: 2020Q1

REPORT INFORMATION
  Report Type: Spontaneous
  Country: US (occurrence: US)
  Receive Date: 20200310
  Receipt Date: 20200310
  Transmission Date: 20200409
  Serious: Yes (Hospitalization)
  Sender: FDA-Public Use
  Company Number: US-ROCHE-2558178

PATIENT
  Age: 62 Year
  Sex: Male

DRUGS (8)
  1. RITUXIMAB. [Suspect]
     Active Substance: RITUXIMAB
     Indication: METASTATIC RENAL CELL CARCINOMA
     Dosage: RITUXIMAB 375 MG/ME2 PER DOSE EVERY 3 WEEKS
     Route: 065
  2. METHYLPREDNISOLONE. [Suspect]
     Active Substance: METHYLPREDNISOLONE
     Route: 042
  3. MYCOPHENOLATE MOFETIL. [Suspect]
     Active Substance: MYCOPHENOLATE MOFETIL
     Indication: AUTOIMMUNE HEPATITIS
     Route: 048
  4. METHYLPREDNISOLONE. [Suspect]
     Active Substance: METHYLPREDNISOLONE
     Indication: AUTOIMMUNE HEPATITIS
     Dosage: TAPERED OFF IN 2 MONTHS
     Route: 065
  5. PREDNISONE. [Suspect]
     Active Substance: PREDNISONE
     Indication: AUTOIMMUNE HEPATITIS
     Dosage: WITH DOSE TAPERING OVER A MONTH.
     Route: 048
  6. MYCOPHENOLATE MOFETIL. [Suspect]
     Active Substance: MYCOPHENOLATE MOFETIL
     Route: 048
  7. METHYLPREDNISOLONE. [Suspect]
     Active Substance: METHYLPREDNISOLONE
     Dosage: RE TREATMENT WITH HIGH DOSE OF METHYLPREDNISOLONE (1 MG/KG TWICE DAILY FOR ONE MONTH, THEN TAPERED O
     Route: 065
  8. PREDNISONE. [Suspect]
     Active Substance: PREDNISONE
     Dosage: DOSE TAPERING OVER A MONTH.
     Route: 048

REACTIONS (5)
  - Muscle necrosis [Recovering/Resolving]
  - Necrotising fasciitis [Recovering/Resolving]
  - Aspergillus infection [Recovering/Resolving]
  - Subcutaneous abscess [Recovering/Resolving]
  - Soft tissue necrosis [Recovering/Resolving]
